FAERS Safety Report 13779175 (Version 1)
Quarter: 2017Q3

REPORT INFORMATION
  Report Type: Report from Study
  Country: US (occurrence: US)
  Receive Date: 20170721
  Receipt Date: 20170721
  Transmission Date: 20171127
  Serious: No
  Sender: FDA-Public Use
  Company Number: US-AMGEN-USASL2017108416

PATIENT
  Age: 62 Year
  Sex: Female

DRUGS (1)
  1. ENBREL [Suspect]
     Active Substance: ETANERCEPT
     Indication: RHEUMATOID ARTHRITIS
     Dosage: UNK
     Route: 065

REACTIONS (8)
  - Oropharyngeal pain [Unknown]
  - Ear discomfort [Unknown]
  - Throat irritation [Unknown]
  - Haemoptysis [Unknown]
  - Headache [Unknown]
  - Paranasal sinus discomfort [Unknown]
  - Hypoacusis [Unknown]
  - Cough [Unknown]
